FAERS Safety Report 23103141 (Version 1)
Quarter: 2023Q4

REPORT INFORMATION
  Report Type: Spontaneous
  Country: US (occurrence: None)
  Receive Date: 20231025
  Receipt Date: 20231025
  Transmission Date: 20240109
  Serious: No
  Sender: FDA-Public Use
  Company Number: 2023A232910

PATIENT
  Sex: Female

DRUGS (1)
  1. SAPHNELO [Suspect]
     Active Substance: ANIFROLUMAB-FNIA
     Dosage: 300.0MG UNKNOWN
     Route: 042
     Dates: start: 202304

REACTIONS (6)
  - Injection site pain [Unknown]
  - Injection site swelling [Unknown]
  - Feeling abnormal [Unknown]
  - Vein disorder [Unknown]
  - Product dose omission issue [Unknown]
  - Incorrect dose administered [Unknown]
